FAERS Safety Report 8862390 (Version 1)
Quarter: 2012Q4

REPORT INFORMATION
  Report Type: 
  Country: US (occurrence: US)
  Receive Date: 20121026
  Receipt Date: 20121026
  Transmission Date: 20130627
  Serious: Yes (Hospitalization)
  Sender: FDA-Public Use
  Company Number: US-GLENMARK GENERICS INC.-2012GMK004247

PATIENT
  Age: 40 Year
  Sex: Female

DRUGS (2)
  1. CITALOPRAM [Suspect]
     Indication: DEPRESSION
     Dosage: 40mg, bid
  2. UNSPECIFIED INGREDIENT [Concomitant]
     Indication: PRODUCT USED FOR UNKNOWN INDICATION
     Dosage: UNK

REACTIONS (9)
  - Electrocardiogram QT prolonged [Recovered/Resolved]
  - Torsade de pointes [Recovered/Resolved]
  - Syncope [None]
  - Dizziness [None]
  - Palpitations [None]
  - Loss of consciousness [None]
  - Fall [None]
  - Laceration [None]
  - Blood pressure increased [None]
